FAERS Safety Report 4365176-3 (Version None)
Quarter: 2004Q2

REPORT INFORMATION
  Report Type: 
  Country: None (occurrence: None)
  Receive Date: 20040525
  Receipt Date: 20040217
  Transmission Date: 20050107
  Serious: No
  Sender: FDA-Public Use
  Company Number: PHEH2004US00956

PATIENT
  Age: 78 Year
  Sex: Female

DRUGS (5)
  1. ZELNORM [Suspect]
     Indication: CONSTIPATION
     Dosage: 6 MG, QD, ORAL
     Route: 048
  2. TRAZODONE HCL [Concomitant]
  3. NEXIUM [Concomitant]
  4. LESCOL [Concomitant]
  5. DIMETAPP [Concomitant]

REACTIONS (1)
  - CHEST PAIN [None]
